FAERS Safety Report 10037046 (Version 2)
Quarter: 2014Q2

REPORT INFORMATION
  Report Type: Spontaneous
  Country: JP (occurrence: JP)
  Receive Date: 20140326
  Receipt Date: 20140425
  Transmission Date: 20141212
  Serious: Yes (Death, Other)
  Sender: FDA-Public Use
  Company Number: JP-ROCHE-1366649

PATIENT
  Age: 55 Year
  Sex: Female

DRUGS (7)
  1. XELODA [Suspect]
     Indication: COLON CANCER METASTATIC
     Route: 048
     Dates: start: 201201
  2. AVASTIN [Suspect]
     Indication: COLON CANCER METASTATIC
     Dosage: DOSAGE IS UNCERTAIN.
     Route: 041
     Dates: start: 201201
  3. IRINOTECAN HYDROCHLORIDE [Concomitant]
     Indication: COLON CANCER METASTATIC
     Route: 041
     Dates: start: 201201
  4. ELPLAT [Concomitant]
     Indication: COLON CANCER METASTATIC
     Route: 041
     Dates: start: 201201
  5. 5-FU [Concomitant]
     Indication: COLON CANCER METASTATIC
     Dosage: DOSAGE IS UNCERTAIN.
     Route: 040
  6. 5-FU [Concomitant]
     Indication: COLON CANCER METASTATIC
     Dosage: DOSAGE IS UNCERTAIN.
     Route: 041
  7. LEVOFOLINATE [Concomitant]
     Indication: COLON CANCER METASTATIC
     Dosage: DOSAGE IS UNCERTAIN.
     Route: 040

REACTIONS (7)
  - Neoplasm progression [Fatal]
  - Venoocclusive liver disease [Unknown]
  - Splenomegaly [Unknown]
  - Ascites [Recovered/Resolved]
  - Platelet count decreased [Recovered/Resolved]
  - Abdominal distension [Unknown]
  - Hypophagia [Unknown]
